FAERS Safety Report 9371461 (Version 2)
Quarter: 2013Q3

REPORT INFORMATION
  Report Type: Spontaneous
  Country: TW (occurrence: TW)
  Receive Date: 20130627
  Receipt Date: 20130705
  Transmission Date: 20140515
  Serious: Yes (Other)
  Sender: FDA-Public Use
  Company Number: TW-JNJFOC-20130611448

PATIENT
  Age: 43 Year
  Sex: Female

DRUGS (1)
  1. USTEKINUMAB [Suspect]
     Indication: PSORIASIS
     Dosage: AT WEEK 0,4 FOLLOWED BY ONCE EVERY 2 TO 3 MONTHS
     Route: 058
     Dates: start: 20121002

REACTIONS (1)
  - Hepatitis B [Recovered/Resolved]
